FAERS Safety Report 7996492-1 (Version None)
Quarter: 2011Q4

REPORT INFORMATION
  Report Type: 
  Country: None (occurrence: None)
  Receive Date: 20111220
  Receipt Date: 20111213
  Transmission Date: 20120403
  Serious: Yes (Other)
  Sender: FDA-Public Use
  Company Number: US-ASTRAZENECA-2011SE70055

PATIENT
  Age: 65 Year
  Sex: Male

DRUGS (3)
  1. LIPITOR [Suspect]
     Route: 065
  2. ATACAND HCT [Suspect]
     Route: 048
  3. CRESTOR [Concomitant]
     Route: 048

REACTIONS (2)
  - CORONARY ARTERY OCCLUSION [None]
  - MYOCARDIAL INFARCTION [None]
